FAERS Safety Report 25621373 (Version 1)
Quarter: 2025Q3

REPORT INFORMATION
  Report Type: Spontaneous
  Country: EU (occurrence: EU)
  Receive Date: 20250730
  Receipt Date: 20250730
  Transmission Date: 20251021
  Serious: Yes (Other)
  Sender: ABBVIE
  Company Number: EU-ABBVIE-6382047

PATIENT
  Sex: Female

DRUGS (2)
  1. MIRVETUXIMAB SORAVTANSINE [Suspect]
     Active Substance: MIRVETUXIMAB SORAVTANSINE
     Indication: Product used for unknown indication
     Route: 042
  2. MIRVETUXIMAB SORAVTANSINE [Suspect]
     Active Substance: MIRVETUXIMAB SORAVTANSINE
     Indication: Product used for unknown indication
     Route: 042

REACTIONS (2)
  - COVID-19 [Recovered/Resolved]
  - Peripheral sensory neuropathy [Recovered/Resolved]
